FAERS Safety Report 18330411 (Version 1)
Quarter: 2020Q3

REPORT INFORMATION
  Report Type: Spontaneous
  Country: US (occurrence: US)
  Receive Date: 20200930
  Receipt Date: 20200930
  Transmission Date: 20201103
  Serious: No
  Sender: FDA-Public Use
  Company Number: US-INDIVIOR US-INDV-126198-2020

PATIENT
  Age: 36 Year
  Sex: Male

DRUGS (2)
  1. LIDOCAINE. [Concomitant]
     Active Substance: LIDOCAINE
     Indication: PRODUCT USED FOR UNKNOWN INDICATION
     Dosage: UNK
     Route: 065
     Dates: start: 2020, end: 2020
  2. SUBLOCADE [Suspect]
     Active Substance: BUPRENORPHINE
     Indication: DRUG DEPENDENCE
     Dosage: 300 MILLIGRAM, QMO (2 INJECTIONS)
     Route: 065
     Dates: start: 20200701

REACTIONS (7)
  - Injection site erythema [Recovered/Resolved]
  - Injection site swelling [Not Recovered/Not Resolved]
  - Injection site erosion [Not Recovered/Not Resolved]
  - Injection site haemorrhage [Unknown]
  - Injection site pruritus [Unknown]
  - Injection site discharge [Unknown]
  - Wrong technique in product usage process [Recovered/Resolved]

NARRATIVE: CASE EVENT DATE: 2020
